FAERS Safety Report 18781270 (Version 1)
Quarter: 2021Q1

REPORT INFORMATION
  Report Type: Spontaneous
  Country: US (occurrence: US)
  Receive Date: 20210124
  Receipt Date: 20210124
  Transmission Date: 20210419
  Serious: Yes (Other)
  Sender: FDA-Public Use
  Company Number: None

PATIENT
  Age: 55 Year
  Sex: Male
  Weight: 78.75 kg

DRUGS (5)
  1. BUPRENORPHINE AND NALOXONE SUBLINGUAL FILM [Suspect]
     Active Substance: BUPRENORPHINE HYDROCHLORIDE\NALOXONE HYDROCHLORIDE
     Indication: PAIN MANAGEMENT
     Dosage: ?          QUANTITY:120 FILM;?
     Route: 060
     Dates: start: 20200124, end: 20210124
  2. CENTRUM SILVER [Concomitant]
     Active Substance: MINERALS\VITAMINS
  3. AMLODIPINE [Concomitant]
     Active Substance: AMLODIPINE BESYLATE
  4. ARMODAFINIL. [Concomitant]
     Active Substance: ARMODAFINIL
  5. ACIPHEX [Concomitant]
     Active Substance: RABEPRAZOLE SODIUM

REACTIONS (10)
  - Chills [None]
  - Withdrawal syndrome [None]
  - Nausea [None]
  - Headache [None]
  - Rhinorrhoea [None]
  - Malaise [None]
  - Influenza like illness [None]
  - Pain [None]
  - Oropharyngeal pain [None]
  - Product substitution issue [None]

NARRATIVE: CASE EVENT DATE: 20200301
